FAERS Safety Report 8401561 (Version 3)
Quarter: 2012Q4

REPORT INFORMATION
  Report Type: 
  Country: AU (occurrence: AU)
  Receive Date: 20120210
  Receipt Date: 20121029
  Transmission Date: 20130627
  Serious: Yes (Disabling, Other)
  Sender: FDA-Public Use
  Company Number: PHHY2012AU010863

PATIENT
  Age: 41 Year
  Sex: Female

DRUGS (9)
  1. CLOZARIL [Suspect]
     Indication: SCHIZOPHRENIA
     Dosage: 75 mg, UNK
     Route: 048
     Dates: start: 20110714, end: 20120814
  2. SEROQUEL [Concomitant]
     Indication: PSYCHOTIC DISORDER
     Dosage: 800 mg, daily
     Route: 048
     Dates: start: 2010
  3. EFEXOR XR [Concomitant]
     Indication: DEPRESSION
     Dosage: 300 mg, daily
     Route: 048
     Dates: start: 2010
  4. VALPROATE SODIUM [Concomitant]
     Indication: EPILEPSY
     Dosage: 2500 mg, (1500 mg nocte/1000 mg mane)
     Route: 048
  5. TOPIRAMATE [Concomitant]
     Indication: EPILEPSY
     Dosage: 100 mg, BID
     Route: 048
  6. LITHIUM [Concomitant]
     Indication: AFFECTIVE DISORDER
     Dosage: 750 mg, BID
     Route: 048
  7. VENLAFAXINE [Concomitant]
     Indication: AFFECTIVE DISORDER
     Dosage: 225 mg, mane
     Route: 048
  8. QUETIAPINE [Concomitant]
     Indication: PSYCHOTIC DISORDER
     Dosage: 800 mg, UNK
     Route: 048
  9. ZUCLOPENTHIXOL DECANOATE [Concomitant]
     Indication: PSYCHOTIC DISORDER
     Dosage: 200 mg, every two weeks

REACTIONS (3)
  - Enuresis [Not Recovered/Not Resolved]
  - Salivary hypersecretion [Recovered/Resolved]
  - Drug ineffective [Recovered/Resolved]
